FAERS Safety Report 25937008 (Version 1)
Quarter: 2025Q4

REPORT INFORMATION
  Report Type: Report from Study
  Country: MA (occurrence: MA)
  Receive Date: 20251017
  Receipt Date: 20251017
  Transmission Date: 20260118
  Serious: Yes (Death)
  Sender: MYLAN
  Company Number: MA-MYLANLABS-2025M1086590

PATIENT
  Age: 63 Year
  Sex: Female

DRUGS (2)
  1. ETOPOSIDE [Suspect]
     Active Substance: ETOPOSIDE
     Indication: Burkitt^s lymphoma
     Dosage: UNK, CYVE REGIMEN
  2. CYTARABINE [Suspect]
     Active Substance: CYTARABINE
     Indication: Burkitt^s lymphoma
     Dosage: UNK, CYVE REGIMEN

REACTIONS (2)
  - Toxicity to various agents [Fatal]
  - Septic shock [Fatal]
